FAERS Safety Report 12872504 (Version 1)
Quarter: 2016Q4

REPORT INFORMATION
  Report Type: Spontaneous
  Country: US (occurrence: US)
  Receive Date: 20161021
  Receipt Date: 20161021
  Transmission Date: 20170207
  Serious: Yes (Other)
  Sender: FDA-Public Use
  Company Number: US-PFIZER INC-2016483212

PATIENT
  Age: 63 Year
  Sex: Female

DRUGS (1)
  1. METOCLOPRAMIDE HCL [Suspect]
     Active Substance: METOCLOPRAMIDE HYDROCHLORIDE
     Indication: TARDIVE DYSKINESIA
     Dosage: UNK

REACTIONS (5)
  - Gait disturbance [Unknown]
  - Tongue dry [Unknown]
  - Parkinson^s disease [Unknown]
  - Dysphagia [Unknown]
  - Oesophageal achalasia [Unknown]

NARRATIVE: CASE EVENT DATE: 2006
